FAERS Safety Report 4620761-6 (Version None)
Quarter: 2005Q1

REPORT INFORMATION
  Report Type: 
  Country: None (occurrence: None)
  Receive Date: 20050325
  Receipt Date: 20050314
  Transmission Date: 20050727
  Serious: Yes (Other)
  Sender: FDA-Public Use
  Company Number: HQWYE209617JUL04

PATIENT
  Age: 59 Year
  Sex: Female
  Weight: 93.07 kg

DRUGS (1)
  1. PREMARIN [Suspect]
     Dosage: ORAL
     Route: 048
     Dates: start: 19840101, end: 19990101

REACTIONS (13)
  - ALOPECIA [None]
  - AMNESIA [None]
  - BREAST CANCER FEMALE [None]
  - CARDIAC ARREST [None]
  - DIABETES MELLITUS [None]
  - DYSPHAGIA [None]
  - HEART RATE IRREGULAR [None]
  - MYOCARDIAL INFARCTION [None]
  - OPTIC NERVE DISORDER [None]
  - PAPILLOEDEMA [None]
  - RADIATION INJURY [None]
  - SCAR [None]
  - WEIGHT DECREASED [None]
